FAERS Safety Report 21654448 (Version 2)
Quarter: 2022Q4

REPORT INFORMATION
  Report Type: Spontaneous
  Country: PR (occurrence: PR)
  Receive Date: 20221129
  Receipt Date: 20221225
  Transmission Date: 20230113
  Serious: No
  Sender: FDA-Public Use
  Company Number: PR-JNJFOC-20221153252

PATIENT
  Age: 69 Year
  Sex: Male

DRUGS (1)
  1. ERLEADA [Suspect]
     Active Substance: APALUTAMIDE
     Indication: Prostate cancer
     Route: 048
     Dates: start: 202208

REACTIONS (3)
  - Pain in extremity [Unknown]
  - Arthralgia [Recovering/Resolving]
  - Haematuria [Not Recovered/Not Resolved]
